FAERS Safety Report 6941821-0 (Version None)
Quarter: 2010Q3

REPORT INFORMATION
  Report Type: 
  Country: None (occurrence: None)
  Receive Date: 20100826
  Receipt Date: 20100817
  Transmission Date: 20110219
  Serious: Yes (Other)
  Sender: FDA-Public Use
  Company Number: AU-PFIZER INC-2010093571

PATIENT
  Age: 53 Year
  Sex: Male
  Weight: 85 kg

DRUGS (1)
  1. CHAMPIX [Suspect]
     Indication: SMOKING CESSATION THERAPY
     Dosage: 1 MG, 2X/DAY
     Route: 048
     Dates: start: 20100302, end: 20100701

REACTIONS (8)
  - ABNORMAL DREAMS [None]
  - DYSGEUSIA [None]
  - FEELING ABNORMAL [None]
  - HYPOAESTHESIA ORAL [None]
  - MOOD SWINGS [None]
  - PARAESTHESIA ORAL [None]
  - PERSONALITY CHANGE [None]
  - THINKING ABNORMAL [None]
